FAERS Safety Report 23864218 (Version 2)
Quarter: 2024Q2

REPORT INFORMATION
  Report Type: Spontaneous
  Country: CN (occurrence: CN)
  Receive Date: 20240516
  Receipt Date: 20240517
  Transmission Date: 20240716
  Serious: Yes (Death, Other)
  Sender: FDA-Public Use
  Company Number: CN-002147023-NVSC2024CN099712

PATIENT
  Age: 4 Decade
  Sex: Female

DRUGS (17)
  1. FLUOROURACIL [Suspect]
     Active Substance: FLUOROURACIL
     Indication: Invasive ductal breast carcinoma
     Dosage: 6 CYCLES
     Route: 065
  2. EPIRUBICIN [Suspect]
     Active Substance: EPIRUBICIN
     Indication: Invasive ductal breast carcinoma
     Dosage: 6 CYCLES
     Route: 065
  3. CYCLOPHOSPHAMIDE [Suspect]
     Active Substance: CYCLOPHOSPHAMIDE
     Indication: Invasive ductal breast carcinoma
     Dosage: 6 CYCLES
     Route: 065
  4. TRASTUZUMAB [Suspect]
     Active Substance: TRASTUZUMAB
     Indication: Invasive ductal breast carcinoma
     Dosage: 6 CYCLES
     Route: 065
  5. TRASTUZUMAB [Suspect]
     Active Substance: TRASTUZUMAB
     Dosage: 10 CYCLES
     Route: 065
  6. TRASTUZUMAB [Suspect]
     Active Substance: TRASTUZUMAB
     Dosage: 5 CYCLES
     Route: 065
  7. TRASTUZUMAB [Suspect]
     Active Substance: TRASTUZUMAB
     Dosage: 6 CYCLES
     Route: 065
     Dates: start: 201810
  8. TRASTUZUMAB [Suspect]
     Active Substance: TRASTUZUMAB
     Dosage: MAINTENANCE THERAPY
     Route: 065
  9. GEMCITABINE [Suspect]
     Active Substance: GEMCITABINE
     Indication: Invasive ductal breast carcinoma
     Dosage: 6 CYCLES
     Route: 065
     Dates: start: 201810
  10. CAPECITABINE [Suspect]
     Active Substance: CAPECITABINE
     Indication: Invasive ductal breast carcinoma
     Dosage: MAINTENANCE THERAPY
     Route: 065
  11. ETOPOSIDE [Suspect]
     Active Substance: ETOPOSIDE
     Indication: Invasive ductal breast carcinoma
     Dosage: 10 CYCLES
     Route: 065
  12. LAPATINIB [Suspect]
     Active Substance: LAPATINIB
     Indication: Invasive ductal breast carcinoma
     Dosage: 10 CYCLES
     Route: 065
  13. LAPATINIB [Suspect]
     Active Substance: LAPATINIB
     Dosage: 5 CYCLES
     Route: 065
  14. LAPATINIB [Suspect]
     Active Substance: LAPATINIB
     Dosage: MAINTENANCE THERAPY
     Route: 065
  15. VINORELBINE [Suspect]
     Active Substance: VINORELBINE TARTRATE
     Indication: Invasive ductal breast carcinoma
     Dosage: 5 CYCLES
     Route: 065
  16. PACLITAXEL [Concomitant]
     Active Substance: PACLITAXEL
     Indication: Invasive ductal breast carcinoma
     Dosage: 6 CYCLES (3 WEEKS PER CYCLE)
     Route: 065
  17. NEDAPLATIN [Concomitant]
     Active Substance: NEDAPLATIN
     Indication: Invasive ductal breast carcinoma
     Dosage: 6 CYCLES (3 WEEKS PER CYCLE)
     Route: 065

REACTIONS (6)
  - Cardiac failure [Fatal]
  - Gastric haemorrhage [Not Recovered/Not Resolved]
  - Chronic gastritis [Unknown]
  - Gastritis erosive [Unknown]
  - Haematemesis [Unknown]
  - Haematochezia [Unknown]

NARRATIVE: CASE EVENT DATE: 20190101
